FAERS Safety Report 20610124 (Version 1)
Quarter: 2022Q1

REPORT INFORMATION
  Report Type: Spontaneous
  Country: CN (occurrence: CN)
  Receive Date: 20220318
  Receipt Date: 20220318
  Transmission Date: 20220423
  Serious: Yes (Hospitalization)
  Sender: FDA-Public Use
  Company Number: CN-BAXTER-2022BAX005876

PATIENT
  Age: 48 Year
  Sex: Female
  Weight: 60 kg

DRUGS (6)
  1. CYCLOPHOSPHAMIDE [Suspect]
     Active Substance: CYCLOPHOSPHAMIDE
     Indication: Breast cancer female
     Dosage: CYCLOPHOSPHAMIDE 0.96 G + 0.9% NACL 100ML
     Route: 041
     Dates: start: 20220109, end: 20220109
  2. SODIUM CHLORIDE [Suspect]
     Active Substance: SODIUM CHLORIDE
     Indication: Medication dilution
     Dosage: CYCLOPHOSPHAMIDE 0.96 G + 0.9% NACL 100ML
     Route: 041
     Dates: start: 20220109, end: 20220109
  3. SODIUM CHLORIDE [Suspect]
     Active Substance: SODIUM CHLORIDE
     Dosage: DOCETAXEL 120MG +  0.9% NACL 750ML
     Route: 041
     Dates: start: 20220109, end: 20220109
  4. SODIUM CHLORIDE [Suspect]
     Active Substance: SODIUM CHLORIDE
     Dosage: TRASTUZUMAB 360 MG + 0.9% NACL 250 ML
     Route: 041
     Dates: start: 20220109, end: 20220109
  5. DOCETAXEL [Suspect]
     Active Substance: DOCETAXEL
     Indication: Breast cancer female
     Dosage: DOCETAXEL 120MG +  0.9% NACL 750ML
     Route: 041
     Dates: start: 20220109, end: 20220109
  6. TRASTUZUMAB [Suspect]
     Active Substance: TRASTUZUMAB
     Indication: Breast cancer female
     Dosage: TRASTUZUMAB 360 MG + 0.9% NACL 250 ML
     Route: 041
     Dates: start: 20220109, end: 20220109

REACTIONS (2)
  - Ear pain [Recovering/Resolving]
  - Rash [Recovering/Resolving]

NARRATIVE: CASE EVENT DATE: 20220206
